FAERS Safety Report 9733878 (Version 3)
Quarter: 2013Q4

REPORT INFORMATION
  Report Type: Spontaneous
  Country: US (occurrence: CH)
  Receive Date: 20131205
  Receipt Date: 20131224
  Transmission Date: 20140711
  Serious: No
  Sender: FDA-Public Use
  Company Number: 2013SP003505

PATIENT
  Age: 43 Year
  Sex: Female
  Weight: 92 kg

DRUGS (2)
  1. LATUDA [Suspect]
     Indication: SCHIZOPHRENIA
     Route: 048
     Dates: start: 20131016, end: 20131102
  2. SOLIAN [Concomitant]
     Dates: start: 2007

REACTIONS (5)
  - Eczema [Recovering/Resolving]
  - Hypotension [Recovered/Resolved]
  - Rash generalised [Recovered/Resolved]
  - Pruritus [Recovering/Resolving]
  - Dizziness [Recovering/Resolving]
